FAERS Safety Report 16903228 (Version 2)
Quarter: 2019Q4

REPORT INFORMATION
  Report Type: Spontaneous
  Country: US (occurrence: US)
  Receive Date: 20191010
  Receipt Date: 20191016
  Transmission Date: 20200122
  Serious: Yes (Congenital Anomaly, Other)
  Sender: FDA-Public Use
  Company Number: US-PFIZER INC-2019430322

PATIENT
  Sex: Female

DRUGS (2)
  1. MISOPROSTOL. [Suspect]
     Active Substance: MISOPROSTOL
     Indication: ABORTION
     Dosage: UNK
     Route: 064
  2. METHOTREXATE SODIUM. [Suspect]
     Active Substance: METHOTREXATE SODIUM
     Indication: ABORTION
     Dosage: UNK
     Route: 064

REACTIONS (15)
  - Micrognathia [Unknown]
  - Premature baby [Unknown]
  - Clinodactyly [Unknown]
  - Maternal exposure during pregnancy [Unknown]
  - Hypertelorism of orbit [Unknown]
  - Foot deformity [Unknown]
  - Abnormal palmar/plantar creases [Unknown]
  - Dysmorphism [Unknown]
  - Delayed fontanelle closure [Unknown]
  - Neck deformity [Unknown]
  - Microcephaly [Unknown]
  - Finger deformity [Unknown]
  - Microphthalmos [Unknown]
  - Nasal disorder [Unknown]
  - Adactyly [Unknown]
